FAERS Safety Report 8508691-0 (Version None)
Quarter: 2012Q3

REPORT INFORMATION
  Report Type: 
  Country: None (occurrence: None)
  Receive Date: 20120713
  Receipt Date: 20120710
  Transmission Date: 20120928
  Serious: Yes (Hospitalization)
  Sender: FDA-Public Use
  Company Number: JP-009507513-1207JPN001500

PATIENT

DRUGS (14)
  1. PEG-INTRON [Suspect]
     Dosage: 1.05 MICROGRAM PER KILOGRAM, QW
     Route: 058
     Dates: start: 20120229, end: 20120605
  2. PEG-INTRON [Suspect]
     Dosage: 1.32 MICROGRAM PER KILOGRAM, QW
     Route: 058
     Dates: start: 20120606
  3. TELAPREVIR [Suspect]
     Dosage: 750 MG, QD
     Route: 048
     Dates: start: 20120215, end: 20120221
  4. TELAPREVIR [Suspect]
     Indication: HEPATITIS C
     Dosage: 2250 MG, QD
     Route: 048
     Dates: start: 20120106, end: 20120110
  5. TELAPREVIR [Suspect]
     Dosage: 750 MG, QD
     Route: 048
     Dates: start: 20120503, end: 20120509
  6. ALLOPURINOL [Concomitant]
     Indication: PROPHYLAXIS
     Dosage: 200 MG, QD
     Route: 048
     Dates: start: 20120215, end: 20120404
  7. PEG-INTRON [Suspect]
     Indication: HEPATITIS C
     Dosage: 1.5 MICROGRAM PER KILOGRAM, QW
     Route: 058
     Dates: start: 20120106, end: 20120110
  8. REBETOL [Suspect]
     Indication: HEPATITIS C
     Dosage: 400 MG, QD
     Route: 048
     Dates: start: 20120106, end: 20120110
  9. ALLOPURINOL [Concomitant]
     Route: 048
     Dates: start: 20120405, end: 20120515
  10. TELAPREVIR [Suspect]
     Dosage: 1500 MG, QD
     Route: 048
     Dates: start: 20120222, end: 20120502
  11. REBETOL [Suspect]
     Dosage: 400 MG, QD
     Route: 048
     Dates: start: 20120215
  12. PEG-INTRON [Suspect]
     Dosage: 1.5 MICROGRAM PER KILOGRAM, QW
     Route: 058
     Dates: start: 20120215, end: 20120222
  13. [THERAPY UNSPECIFIED] [Concomitant]
     Indication: PROPHYLAXIS
     Dosage: 2.5 G, QD
     Route: 048
     Dates: start: 20120321
  14. [THERAPY UNSPECIFIED] [Concomitant]
     Route: 048

REACTIONS (1)
  - ASCITES [None]
